FAERS Safety Report 6225953-0 (Version None)
Quarter: 2009Q2

REPORT INFORMATION
  Report Type: 
  Country: None (occurrence: None)
  Receive Date: 20090612
  Receipt Date: 20090506
  Transmission Date: 20091009
  Serious: No
  Sender: FDA-Public Use
  Company Number: US-ABBOTT-09P-163-0571685-00

PATIENT
  Sex: Male
  Weight: 94.432 kg

DRUGS (1)
  1. HUMIRA [Suspect]
     Indication: RHEUMATOID ARTHRITIS
     Dates: start: 20090201

REACTIONS (5)
  - DRUG INEFFECTIVE [None]
  - INFLAMMATION [None]
  - PAIN [None]
  - RASH MACULAR [None]
  - SKIN DEPIGMENTATION [None]
